FAERS Safety Report 5975171-6 (Version None)
Quarter: 2008Q4

REPORT INFORMATION
  Report Type: 
  Country: None (occurrence: None)
  Receive Date: 20081202
  Receipt Date: 20080610
  Transmission Date: 20090506
  Serious: No
  Sender: FDA-Public Use
  Company Number: US-ABBOTT-08P-163-0456076-00

PATIENT
  Sex: Female
  Weight: 65.83 kg

DRUGS (6)
  1. LUPRON DEPOT [Suspect]
     Indication: ENDOMETRIOSIS
     Route: 030
     Dates: start: 20080425, end: 20080425
  2. ATENOLOL [Concomitant]
     Indication: HYPERTENSION
     Dosage: UNIT: 25 MILLIGRAMS
     Route: 048
     Dates: start: 20080428
  3. PANTOPRAZOLE SODIUM [Concomitant]
     Indication: GASTROOESOPHAGEAL REFLUX DISEASE
  4. MONTELUKAST SODIUM [Concomitant]
     Indication: ASTHMA
  5. LORATADINE [Concomitant]
     Indication: HYPERSENSITIVITY
  6. ATORVASTATIN CALCIUM [Concomitant]
     Indication: BLOOD CHOLESTEROL INCREASED
     Dosage: OFF AND ON

REACTIONS (5)
  - DYSPNOEA [None]
  - HEADACHE [None]
  - HOT FLUSH [None]
  - HYPERTENSION [None]
  - NIGHT SWEATS [None]
